FAERS Safety Report 8299425-6 (Version None)
Quarter: 2012Q2

REPORT INFORMATION
  Report Type: 
  Country: None (occurrence: None)
  Receive Date: 20120419
  Receipt Date: 20120404
  Transmission Date: 20120825
  Serious: Yes (Hospitalization)
  Sender: FDA-Public Use
  Company Number: PHHY2010JP58471

PATIENT
  Sex: Female
  Weight: 57 kg

DRUGS (24)
  1. SIMULECT [Suspect]
     Indication: RENAL TRANSPLANT
     Dosage: 20 MG, ONCE/SINGLE
     Route: 042
     Dates: start: 20100120, end: 20100120
  2. RITUXAN [Suspect]
     Dosage: 200 MG, UNK
     Route: 042
     Dates: start: 20100525
  3. MYCOPHENOLATE MOFETIL (CELLCEPT) [Suspect]
     Indication: RENAL TRANSPLANT
     Dosage: 1800 MG, UNK
     Route: 048
     Dates: start: 20100106, end: 20100119
  4. MYCOPHENOLATE MOFETIL (CELLCEPT) [Suspect]
     Dosage: 1500 MG, UNK
     Route: 048
     Dates: start: 20100124
  5. MYCOPHENOLATE MOFETIL (CELLCEPT) [Suspect]
     Dosage: 1500 MG, UNK
     Route: 048
     Dates: start: 20100121
  6. SPANIDIN [Concomitant]
     Indication: KIDNEY TRANSPLANT REJECTION
     Dosage: 200 MG, UNK
     Route: 042
     Dates: start: 20100527, end: 20100531
  7. NEORAL [Suspect]
     Indication: RENAL TRANSPLANT
     Dosage: 300 MG, QD
     Route: 048
     Dates: start: 20100117, end: 20100119
  8. NEORAL [Suspect]
     Dosage: 200 MG
     Route: 048
     Dates: start: 20100302, end: 20101003
  9. NEORAL [Suspect]
     Dosage: 150 MG, UNK
     Route: 048
     Dates: start: 20101004
  10. PREDNISOLONE [Suspect]
     Indication: RENAL TRANSPLANT
     Dosage: 40 MG, UNK
     Route: 048
     Dates: start: 20100124, end: 20100125
  11. PREDNISOLONE [Suspect]
     Dosage: 20 MG, UNK
     Route: 048
     Dates: start: 20100129, end: 20100130
  12. SOLU-MEDROL [Concomitant]
     Indication: KIDNEY TRANSPLANT REJECTION
     Dosage: 500 MG, UNK
     Route: 042
     Dates: start: 20100524
  13. ADALAT CC [Concomitant]
     Dosage: 40 MG, UNK
     Route: 048
     Dates: start: 20100712
  14. SIMULECT [Suspect]
     Dosage: 20 MG, ONCE/SINGLE
     Route: 042
     Dates: start: 20100124, end: 20100124
  15. NEORAL [Suspect]
     Dosage: 300 MG, QD
     Dates: start: 20100123, end: 20100206
  16. NEORAL [Suspect]
     Dosage: 150 MG, UNK
     Dates: start: 20110124, end: 20111012
  17. NEORAL [Suspect]
     Dosage: 250 MG, QD
     Route: 048
     Dates: start: 20100207, end: 20100301
  18. ADALAT [Concomitant]
     Indication: HYPERTENSION
     Dosage: 60 MG, UNK
     Route: 048
     Dates: start: 20100119, end: 20100711
  19. NEORAL [Suspect]
     Dosage: 100 MG, UNK
     Dates: start: 20111013
  20. SANDIMMUNE [Suspect]
     Indication: RENAL TRANSPLANT
     Dosage: 100 MG, UNK
     Route: 042
     Dates: start: 20100120, end: 20100122
  21. PREDNISOLONE [Suspect]
     Dosage: 30 MG, UNK
     Route: 048
     Dates: start: 20100126, end: 20100128
  22. PREDNISOLONE [Suspect]
     Dosage: 10 MG, UNK
     Route: 048
     Dates: start: 20100131
  23. RITUXAN [Suspect]
     Indication: KIDNEY TRANSPLANT REJECTION
     Dosage: 200 MG, UNK
     Route: 042
     Dates: start: 20100113, end: 20100113
  24. SOLU-MEDROL [Concomitant]
     Dosage: 250 MG, UNK
     Route: 048
     Dates: start: 20100531

REACTIONS (10)
  - KIDNEY TRANSPLANT REJECTION [None]
  - RASH [None]
  - CYTOMEGALOVIRUS INFECTION [None]
  - RENAL IMPAIRMENT [None]
  - HYPOKINESIA [None]
  - PYREXIA [None]
  - URINE ABNORMALITY [None]
  - WHITE BLOOD CELL COUNT DECREASED [None]
  - URINARY TRACT INFECTION [None]
  - PNEUMONIA STAPHYLOCOCCAL [None]
